FAERS Safety Report 7529722-0 (Version None)
Quarter: 2011Q2

REPORT INFORMATION
  Report Type: 
  Country: None (occurrence: None)
  Receive Date: 20110607
  Receipt Date: 20110530
  Transmission Date: 20111010
  Serious: Yes (Hospitalization)
  Sender: FDA-Public Use
  Company Number: B0723616A

PATIENT
  Sex: Male

DRUGS (3)
  1. LAMICTAL [Suspect]
     Indication: EPILEPSY
     Dosage: 25MG PER DAY
     Route: 048
     Dates: start: 20110323, end: 20110407
  2. ZONISAMIDE [Concomitant]
     Indication: EPILEPSY
     Dosage: 200MG PER DAY
     Route: 048
  3. MYSTAN [Concomitant]
     Indication: EPILEPSY
     Dosage: 20MG PER DAY
     Route: 048

REACTIONS (3)
  - HAEMATEMESIS [None]
  - RASH [None]
  - ECZEMA [None]
